FAERS Safety Report 7740999-9 (Version None)
Quarter: 2011Q3

REPORT INFORMATION
  Report Type: 
  Country: None (occurrence: None)
  Receive Date: 20110909
  Receipt Date: 20110908
  Transmission Date: 20111222
  Serious: Yes (Life-Threatening, Hospitalization, Other)
  Sender: FDA-Public Use
  Company Number: JP-PFIZER INC-2011137906

PATIENT
  Age: 80 Year
  Sex: Female
  Weight: 48.45 kg

DRUGS (6)
  1. CARVEDILOL [Suspect]
     Dosage: BETWEEN 1.25MG AND 7.5MG, 1X/DAY
     Dates: start: 20100301, end: 20110501
  2. ITRACONAZOLE [Interacting]
     Indication: FUNGAL INFECTION
     Dosage: 100 MG, DAILY
     Route: 048
     Dates: start: 20110121, end: 20110531
  3. PAXIL [Concomitant]
     Dosage: 10 MG, 1X/DAY
     Dates: start: 20110527, end: 20110601
  4. CARVEDILOL [Suspect]
     Dosage: 10 MG, 1X/DAY
     Dates: start: 20110501, end: 20110531
  5. ALDACTONE [Interacting]
     Indication: CARDIAC FAILURE
     Dosage: 25 MG, DAILY
     Route: 048
     Dates: end: 20110531
  6. CLARITHROMYCIN [Suspect]
     Dosage: 200 MG, 2X/DAY
     Dates: end: 20110531

REACTIONS (5)
  - BRADYCARDIA [None]
  - HYPERKALAEMIA [None]
  - RENAL IMPAIRMENT [None]
  - HYPONATRAEMIA [None]
  - DRUG INTERACTION [None]
